FAERS Safety Report 5257246-2 (Version None)
Quarter: 2007Q1

REPORT INFORMATION
  Report Type: 
  Country: None (occurrence: None)
  Receive Date: 20070302
  Receipt Date: 20070221
  Transmission Date: 20070707
  Serious: Yes (Hospitalization)
  Sender: FDA-Public Use
  Company Number: S06-USA-03196-01

PATIENT
  Age: 74 Year
  Sex: Female

DRUGS (8)
  1. CELEXA [Suspect]
     Indication: DEPRESSION
     Dosage: 25 MG QD PO
     Route: 048
     Dates: start: 20060301, end: 20060523
  2. CELEXA [Suspect]
     Indication: DEPRESSION
     Dosage: 20 MG QD PO
     Route: 048
     Dates: end: 20060301
  3. CARTIA XT [Concomitant]
  4. LISINOPRIL [Concomitant]
  5. POTASSIUM ACETATE [Concomitant]
  6. HYDROCHLOROTHIAZIDE [Concomitant]
  7. CENTRUM [Concomitant]
  8. ASPIRIN [Concomitant]

REACTIONS (3)
  - BLOOD SODIUM DECREASED [None]
  - MANIA [None]
  - OVERDOSE [None]
